FAERS Safety Report 7593718-3 (Version None)
Quarter: 2011Q3

REPORT INFORMATION
  Report Type: 
  Country: None (occurrence: None)
  Receive Date: 20110706
  Receipt Date: 20110622
  Transmission Date: 20111222
  Serious: Yes (Hospitalization)
  Sender: FDA-Public Use
  Company Number: PHHO2011LT07102

PATIENT
  Sex: Female
  Weight: 72 kg

DRUGS (8)
  1. BLINDED ALISKIREN [Suspect]
     Indication: CARDIAC FAILURE CHRONIC
     Dosage: CODE NOT BROKEN
     Route: 048
     Dates: start: 20100104
  2. ENALAPRIL MALEATE [Suspect]
     Indication: CARDIAC FAILURE CHRONIC
     Route: 048
  3. TORSEMIDE [Concomitant]
     Indication: CARDIAC FAILURE
     Dosage: 10 MG, QID
     Route: 048
     Dates: start: 20050101
  4. ENALAPRIL MALEATE [Suspect]
     Indication: CARDIAC FAILURE CHRONIC
     Dosage: CODE NOT BROKEN
     Route: 048
     Dates: start: 20100104
  5. TRIMETAZIDINE [Concomitant]
     Indication: MYOCARDIAL ISCHAEMIA
     Dosage: 35 MG, BID
     Route: 048
     Dates: start: 20091105
  6. BLINDED NO TREATMENT RECEIVED [Suspect]
     Indication: CARDIAC FAILURE CHRONIC
     Dosage: CODE NOT BROKEN
     Route: 048
     Dates: start: 20100104
  7. ALISKIREN [Suspect]
     Indication: CARDIAC FAILURE CHRONIC
     Route: 048
  8. CARVEDILOL [Concomitant]
     Indication: CARDIAC FAILURE
     Dosage: 25 MG, BID
     Route: 048
     Dates: start: 20050101

REACTIONS (1)
  - BRONCHITIS [None]
